FAERS Safety Report 6000685-2 (Version None)
Quarter: 2008Q4

REPORT INFORMATION
  Report Type: 
  Country: None (occurrence: None)
  Receive Date: 20081215
  Receipt Date: 20081112
  Transmission Date: 20090506
  Serious: Yes (Hospitalization)
  Sender: FDA-Public Use
  Company Number: US-ROCHE-585612

PATIENT
  Sex: Male
  Weight: 76.7 kg

DRUGS (9)
  1. PEG-INTERFERON ALFA 2A (RO 25-8310) [Suspect]
     Indication: HEPATITIS C
     Route: 058
     Dates: start: 20080711, end: 20080801
  2. RIBAVIRIN [Suspect]
     Indication: HEPATITIS C
     Route: 048
     Dates: start: 20080711, end: 20080801
  3. BLINDED VX-950 [Suspect]
     Indication: HEPATITIS C
     Dosage: DOSE BLINDED DOSAGE REGIMEN 750 MG THREE TIMES DAILY.
     Route: 048
     Dates: start: 20080711, end: 20080801
  4. BACTRIM [Concomitant]
     Indication: PROSTATITIS
     Dosage: ALSO USED TO TREAT URINARY TRACT INFECTION
     Route: 048
     Dates: start: 20080730
  5. ALEVE [Concomitant]
     Dosage: ALSO USED TO TREAT MYALGIA
     Route: 048
     Dates: start: 20050101
  6. TUMS [Concomitant]
     Route: 048
     Dates: start: 20030101
  7. LAMISIL [Concomitant]
     Indication: ONYCHOMYCOSIS
     Route: 048
     Dates: start: 20080501
  8. VITAMIN B COMPLEX CAP [Concomitant]
     Indication: NUTRITIONAL SUPPORT
     Route: 048
     Dates: start: 20030101
  9. MULTIVITAMIN WITH FE [Concomitant]
     Indication: NUTRITIONAL SUPPORT
     Route: 048
     Dates: start: 19970101

REACTIONS (2)
  - PERIRECTAL ABSCESS [None]
  - URINARY RETENTION [None]
